FAERS Safety Report 8268137-7 (Version None)
Quarter: 2012Q2

REPORT INFORMATION
  Report Type: 
  Country: None (occurrence: None)
  Receive Date: 20120409
  Receipt Date: 20120330
  Transmission Date: 20120825
  Serious: Yes (Hospitalization)
  Sender: FDA-Public Use
  Company Number: US-ASTRAZENECA-2012SE17022

PATIENT
  Age: 28482 Day
  Sex: Male

DRUGS (10)
  1. CELEBREX [Concomitant]
     Indication: OSTEOARTHRITIS
     Route: 048
  2. AZD6140 [Suspect]
     Indication: CORONARY ARTERY DISEASE
     Route: 048
     Dates: start: 20110808, end: 20120214
  3. ASPIRIN [Concomitant]
     Route: 048
     Dates: start: 20120310
  4. LISINOPRIL [Concomitant]
     Indication: HYPERTENSION
     Route: 048
  5. ZOCOR [Concomitant]
     Indication: HYPERLIPIDAEMIA
     Route: 048
     Dates: start: 20110726
  6. ASPIRIN [Concomitant]
     Route: 048
     Dates: end: 20120310
  7. MULTI-VITAMIN [Concomitant]
     Indication: VITAMIN SUPPLEMENTATION
     Route: 048
  8. METOPROLOL TARTRATE [Concomitant]
     Indication: HYPERTENSION
     Route: 048
  9. METAMUCIL-2 [Concomitant]
     Indication: CONSTIPATION PROPHYLAXIS
     Route: 048
  10. AZD6140 [Suspect]
     Route: 048
     Dates: start: 20120220, end: 20120301

REACTIONS (1)
  - DUODENAL ULCER [None]
